FAERS Safety Report 9858559 (Version 2)
Quarter: 2014Q2

REPORT INFORMATION
  Report Type: Spontaneous
  Country: US (occurrence: US)
  Receive Date: 20140131
  Receipt Date: 20140422
  Transmission Date: 20141212
  Serious: Yes (Other)
  Sender: FDA-Public Use
  Company Number: US-SA-2014SA011788

PATIENT
  Age: 78 Year
  Sex: Female
  Weight: 78 kg

DRUGS (7)
  1. HECTOROL [Suspect]
     Indication: HYPERPARATHYROIDISM
     Route: 040
     Dates: start: 20131228, end: 20140109
  2. ALBUTEROL SULFATE [Concomitant]
     Indication: PNEUMONIA
     Route: 055
  3. ATORVASTATIN [Concomitant]
     Indication: BLOOD PRESSURE INCREASED
  4. CALCIUM ACETATE [Concomitant]
     Indication: HYPERPARATHYROIDISM
  5. PLAVIX [Concomitant]
     Indication: BLOOD CHOLESTEROL INCREASED
  6. PREDNISONE [Concomitant]
  7. NITROSTAT [Concomitant]
     Indication: CHEST PAIN

REACTIONS (4)
  - Hypersensitivity [Recovered/Resolved]
  - Blood pressure decreased [Recovered/Resolved]
  - Urticaria [Recovered/Resolved]
  - Pruritus [Recovered/Resolved]
